FAERS Safety Report 7314297-1 (Version None)
Quarter: 2011Q1

REPORT INFORMATION
  Report Type: 
  Country: None (occurrence: None)
  Receive Date: 20110225
  Receipt Date: 20100726
  Transmission Date: 20110831
  Serious: No
  Sender: FDA-Public Use
  Company Number: US-MYLANLABS-2010S1012387

PATIENT
  Age: 18 Year
  Sex: Female

DRUGS (5)
  1. AMNESTEEM [Suspect]
     Indication: ACNE
     Dates: end: 20100602
  2. AMNESTEEM [Suspect]
     Dates: end: 20100602
  3. CLARAVIS [Suspect]
     Indication: ACNE
     Route: 048
     Dates: start: 20100223
  4. ALESSE [Concomitant]
  5. NAPROXEN [Concomitant]

REACTIONS (2)
  - EYE DISORDER [None]
  - DRY EYE [None]
